FAERS Safety Report 6986423-5 (Version None)
Quarter: 2010Q3

REPORT INFORMATION
  Report Type: 
  Country: None (occurrence: None)
  Receive Date: 20100915
  Receipt Date: 20090702
  Transmission Date: 20110219
  Serious: No
  Sender: FDA-Public Use
  Company Number: US-WYE-H10029909

PATIENT
  Age: 67 Year
  Sex: Female

DRUGS (2)
  1. PRISTIQ [Suspect]
     Dosage: UNKNOWN
  2. DIOVAN [Interacting]
     Dosage: 10 MG - FREQUENCY UNSPECIFIED

REACTIONS (3)
  - DRUG INTERACTION [None]
  - MEMORY IMPAIRMENT [None]
  - MIDDLE INSOMNIA [None]
